FAERS Safety Report 10006846 (Version 1)
Quarter: 2014Q1

REPORT INFORMATION
  Report Type: Spontaneous
  Country: US (occurrence: None)
  Receive Date: 20140228
  Receipt Date: 20140228
  Transmission Date: 20141002
  Serious: Yes (Other)
  Sender: FDA-Public Use
  Company Number: 225787

PATIENT
  Age: 58 Year
  Sex: Male

DRUGS (1)
  1. PICATO (INGENOL MEBUTATE) (0.015 %, GEL) [Suspect]
     Indication: ACTINIC KERATOSIS
     Dates: start: 20140118, end: 20140120

REACTIONS (4)
  - Application site erythema [None]
  - Application site irritation [None]
  - Application site exfoliation [None]
  - Drug administered at inappropriate site [None]
